FAERS Safety Report 9750881 (Version 2)
Quarter: 2013Q4

REPORT INFORMATION
  Report Type: Report from Study
  Country: US (occurrence: US)
  Receive Date: 20131212
  Receipt Date: 20131212
  Transmission Date: 20140711
  Serious: Yes (Other)
  Sender: FDA-Public Use
  Company Number: US-B.I. PHARMACEUTICALS,INC./RIDGEFIELD-2002-BP-04239BP

PATIENT
  Age: 22 Year
  Sex: Female

DRUGS (2)
  1. VIRAMUNE TABLETS [Suspect]
     Indication: HIV INFECTION
     Dosage: 200 MG
     Route: 048
     Dates: start: 20020313, end: 20020417
  2. COMBIVIR [Suspect]
     Indication: HIV INFECTION
     Route: 048
     Dates: start: 20020313, end: 20020417

REACTIONS (1)
  - Stillbirth [Unknown]
